FAERS Safety Report 17723447 (Version 4)
Quarter: 2020Q2

REPORT INFORMATION
  Report Type: Spontaneous
  Country: US (occurrence: US)
  Receive Date: 20200429
  Receipt Date: 20200616
  Transmission Date: 20200714
  Serious: No
  Sender: FDA-Public Use
  Company Number: US-BIOGEN-2020BI00865546

PATIENT
  Sex: Female

DRUGS (1)
  1. TYSABRI [Suspect]
     Active Substance: NATALIZUMAB
     Indication: MULTIPLE SCLEROSIS
     Route: 065
     Dates: start: 20110727

REACTIONS (9)
  - Product dose omission [Unknown]
  - Peripheral coldness [Unknown]
  - Feeling hot [Unknown]
  - Blood pressure increased [Unknown]
  - SARS-CoV-2 test positive [Unknown]
  - Ear discomfort [Unknown]
  - Neurosis [Unknown]
  - Frustration tolerance decreased [Unknown]
  - Memory impairment [Unknown]
